FAERS Safety Report 5132760-9 (Version None)
Quarter: 2006Q4

REPORT INFORMATION
  Report Type: 
  Country: None (occurrence: None)
  Receive Date: 20061011
  Receipt Date: 20060928
  Transmission Date: 20070319
  Serious: Yes (Hospitalization, Other)
  Sender: FDA-Public Use
  Company Number: DSA_28707_2006

PATIENT
  Age: 75 Year
  Sex: Male
  Weight: 41 kg

DRUGS (12)
  1. RENIVACE [Suspect]
     Indication: CARDIAC FAILURE
     Dosage: 2.5 MG BID PO
     Route: 048
     Dates: start: 20040303, end: 20060220
  2. RENIVACE [Suspect]
     Indication: CARDIAC FAILURE
     Dosage: 5 MG QD PO
     Route: 048
     Dates: start: 20060329, end: 20060718
  3. RENIVACE [Suspect]
     Indication: CARDIAC FAILURE
     Dosage: VAR Q DAY PO
     Route: 048
     Dates: start: 20020627, end: 20040302
  4. AMLODIN [Concomitant]
  5. LASIX [Concomitant]
  6. GASTER D [Concomitant]
  7. CLARITIN [Concomitant]
  8. FEXOFENADINE [Concomitant]
  9. DIFLUPREDNATE [Concomitant]
  10. CEFPODOXIME PROXETIL [Concomitant]
  11. BETAMETHASONE VALERATE [Concomitant]
  12. HYDROCORTISONE BUTYRATE PROPIONATE [Concomitant]

REACTIONS (8)
  - CARDIAC FAILURE [None]
  - CONDITION AGGRAVATED [None]
  - GAIT DISTURBANCE [None]
  - IMPETIGO [None]
  - NASOPHARYNGITIS [None]
  - PEMPHIGOID [None]
  - SPINAL COMPRESSION FRACTURE [None]
  - THERAPY NON-RESPONDER [None]
